FAERS Safety Report 13782045 (Version 3)
Quarter: 2017Q4

REPORT INFORMATION
  Report Type: Report from Study
  Country: CA (occurrence: CA)
  Receive Date: 20170724
  Receipt Date: 20171018
  Transmission Date: 20180320
  Serious: Yes (Other)
  Sender: FDA-Public Use
  Company Number: CA-BIOGEN-2017BI00434807

PATIENT
  Age: 37 Year
  Sex: Female

DRUGS (2)
  1. TYSABRI [Suspect]
     Active Substance: NATALIZUMAB
     Indication: MULTIPLE SCLEROSIS
     Dosage: INFUSED OVER 1 HOUR
     Route: 042
     Dates: start: 20161223
  2. STRATTERA [Concomitant]
     Active Substance: ATOMOXETINE HYDROCHLORIDE
     Indication: PRODUCT USED FOR UNKNOWN INDICATION
     Route: 065

REACTIONS (12)
  - Musculoskeletal disorder [Unknown]
  - Induration [Recovered/Resolved]
  - Vaginal infection [Recovered/Resolved]
  - Type 2 diabetes mellitus [Not Recovered/Not Resolved]
  - Withdrawal syndrome [Recovered/Resolved]
  - Musculoskeletal stiffness [Not Recovered/Not Resolved]
  - Nuclear magnetic resonance imaging abnormal [Unknown]
  - Hepatic enzyme abnormal [Not Recovered/Not Resolved]
  - Arthralgia [Not Recovered/Not Resolved]
  - Blister [Unknown]
  - Aggression [Recovered/Resolved]
  - Bladder discomfort [Recovered/Resolved]

NARRATIVE: CASE EVENT DATE: 201612
